FAERS Safety Report 23129671 (Version 1)
Quarter: 2023Q4

REPORT INFORMATION
  Report Type: Spontaneous
  Country: US (occurrence: US)
  Receive Date: 20231031
  Receipt Date: 20231031
  Transmission Date: 20240109
  Serious: No
  Sender: FDA-Public Use
  Company Number: US-Covis Pharma GmbH-2023COV01732

PATIENT
  Sex: Female

DRUGS (1)
  1. ALTOPREV [Suspect]
     Active Substance: LOVASTATIN
     Route: 048

REACTIONS (1)
  - Product dose omission issue [Not Recovered/Not Resolved]
